FAERS Safety Report 7311317-5 (Version None)
Quarter: 2011Q1

REPORT INFORMATION
  Report Type: 
  Country: None (occurrence: None)
  Receive Date: 20110224
  Receipt Date: 20110210
  Transmission Date: 20110831
  Serious: Yes (Other)
  Sender: FDA-Public Use
  Company Number: FR-ACTELION-A-CH2011-45031

PATIENT
  Age: 8 Year

DRUGS (1)
  1. ZAVESCA [Suspect]
     Dosage: UNK , UNK
     Route: 048

REACTIONS (2)
  - DYSPHAGIA [None]
  - GASTROSTOMY [None]
